FAERS Safety Report 5062710-5 (Version None)
Quarter: 2006Q3

REPORT INFORMATION
  Report Type: 
  Country: None (occurrence: None)
  Receive Date: 20060725
  Receipt Date: 20060725
  Transmission Date: 20061208
  Serious: Yes (Disabling)
  Sender: FDA-Public Use
  Company Number: None

PATIENT
  Sex: Female

DRUGS (1)
  1. ERTAPENEM 500 MG MERCK [Suspect]
     Indication: ESCHERICHIA INFECTION
     Dosage: 500MG   Q24   IV BOLUS
     Route: 040
     Dates: start: 20060310, end: 20060312

REACTIONS (1)
  - LIVER FUNCTION TEST ABNORMAL [None]
